FAERS Safety Report 18841381 (Version 4)
Quarter: 2021Q4

REPORT INFORMATION
  Report Type: Spontaneous
  Country: US (occurrence: US)
  Receive Date: 20210203
  Receipt Date: 20211013
  Transmission Date: 20220303
  Serious: No
  Sender: FDA-Public Use
  Company Number: US-ACORDA-ACO_167561_2021

PATIENT
  Age: 58 Year
  Sex: Female

DRUGS (34)
  1. AMPYRA [Suspect]
     Active Substance: DALFAMPRIDINE
     Indication: Gait disturbance
     Route: 048
     Dates: start: 20200529
  2. TYSABRI [Suspect]
     Active Substance: NATALIZUMAB
     Indication: Multiple sclerosis
     Route: 065
     Dates: start: 20071217, end: 20201104
  3. TYSABRI [Suspect]
     Active Substance: NATALIZUMAB
     Route: 042
     Dates: end: 20201202
  4. DULOXETINE [Concomitant]
     Active Substance: DULOXETINE
     Indication: Depression
     Dosage: DAILY
     Route: 048
  5. DULOXETINE [Concomitant]
     Active Substance: DULOXETINE
     Route: 065
  6. HORIZANT [Concomitant]
     Active Substance: GABAPENTIN ENACARBIL
     Indication: Neuralgia
     Dosage: HS
     Route: 048
     Dates: start: 20200518
  7. TOPAMAX [Concomitant]
     Active Substance: TOPIRAMATE
     Indication: Trigeminal neuralgia
     Dosage: AT HS
     Route: 065
  8. CARBAMAZEPINE [Concomitant]
     Active Substance: CARBAMAZEPINE
     Indication: Trigeminal neuralgia
     Route: 048
  9. ALPRAZOLAM [Concomitant]
     Active Substance: ALPRAZOLAM
     Route: 048
     Dates: start: 20200827
  10. BUPROPION HYDROCHLORIDE [Concomitant]
     Active Substance: BUPROPION HYDROCHLORIDE
     Route: 048
     Dates: start: 20200827
  11. ZOLPIDEM [Concomitant]
     Active Substance: ZOLPIDEM TARTRATE
     Dosage: 1 TABLET BY MOUTH EVERY NIGHT
     Route: 048
     Dates: start: 20200811
  12. MODAFINIL [Concomitant]
     Active Substance: MODAFINIL
     Indication: Fatigue
     Dosage: 100 MILLIGRAM, QD (TWO TABLET ONCE A MONTH)
     Route: 048
     Dates: start: 20200623
  13. FISH OIL [Concomitant]
     Active Substance: FISH OIL
     Dosage: 1 DOSAGE FORM, QD (120 TO 180 MG)
     Route: 048
  14. VITAMINS [Concomitant]
     Active Substance: VITAMINS
     Route: 048
  15. VITAMIN B COMPLEX [Concomitant]
     Active Substance: CYANOCOBALAMIN\DEXPANTHENOL\NIACINAMIDE\PYRIDOXINE HYDROCHLORIDE\RIBOFLAVIN 5^-PHOSPHATE SODIUM\THIA
     Route: 048
  16. VITAMIN C [Concomitant]
     Active Substance: ASCORBIC ACID
     Route: 048
  17. IBUPROFEN [Concomitant]
     Active Substance: IBUPROFEN
     Dosage: AS NEEDED
     Route: 065
  18. VITAMIN D3 [Concomitant]
     Active Substance: CHOLECALCIFEROL
     Dosage: 2 CAPSULE BY MOUTH ONCE A DAY, QD
     Route: 065
  19. NUEDEXTA [Concomitant]
     Active Substance: DEXTROMETHORPHAN HYDROBROMIDE\QUINIDINE SULFATE
     Indication: Affect lability
     Route: 065
  20. TOPIRAMATE [Concomitant]
     Active Substance: TOPIRAMATE
     Dosage: 1 TABLET BY MOUTH EVERY NIGHT AT BEDTIME
     Route: 048
     Dates: start: 20191215
  21. ZOLPIDEM [Concomitant]
     Active Substance: ZOLPIDEM TARTRATE
     Route: 048
     Dates: start: 20200811
  22. AMANTADINE. [Concomitant]
     Active Substance: AMANTADINE HYDROCHLORIDE
     Route: 048
  23. ONDANSETRON [Concomitant]
     Active Substance: ONDANSETRON
     Route: 048
  24. OXYCODONE [Concomitant]
     Active Substance: OXYCODONE
     Route: 048
  25. ATIVAN [Concomitant]
     Active Substance: LORAZEPAM
     Route: 048
  26. TEGRETOL [Concomitant]
     Active Substance: CARBAMAZEPINE
     Route: 048
  27. LIDOCAINE\PRILOCAINE [Concomitant]
     Active Substance: LIDOCAINE\PRILOCAINE
     Route: 048
  28. PYRIDIUM [Concomitant]
     Active Substance: PHENAZOPYRIDINE
     Route: 048
  29. WELLBUTRIN [Concomitant]
     Active Substance: BUPROPION HYDROCHLORIDE
     Route: 048
  30. PFIZER-BIONTECH COVID-19 VACCINE [Concomitant]
     Active Substance: TOZINAMERAN
     Route: 065
     Dates: start: 20210225
  31. PFIZER-BIONTECH COVID-19 VACCINE [Concomitant]
     Active Substance: TOZINAMERAN
     Route: 065
     Dates: start: 20210317
  32. INFLUENZA VIRUS VACCINE [Concomitant]
     Active Substance: INFLUENZA VIRUS VACCINE
     Route: 065
  33. PNEUMOCOCCAL VACCINE POLYVALENT NOS [Concomitant]
     Active Substance: PNEUMOCOCCAL VACCINE POLYVALENT
     Route: 065
     Dates: start: 2018
  34. MORPHINE [Concomitant]
     Active Substance: MORPHINE
     Route: 048

REACTIONS (23)
  - Blood pressure orthostatic abnormal [Not Recovered/Not Resolved]
  - Condition aggravated [Unknown]
  - Weight decreased [Unknown]
  - Actinic keratosis [Unknown]
  - Memory impairment [Unknown]
  - Dysphagia [Unknown]
  - Dyspnoea exertional [Unknown]
  - Incontinence [Unknown]
  - Diarrhoea [Not Recovered/Not Resolved]
  - Muscle spasticity [Recovered/Resolved]
  - Depression [Unknown]
  - Leukocytosis [Unknown]
  - Nystagmus [Unknown]
  - Ophthalmoplegia [Unknown]
  - Eye disorder [Unknown]
  - Affect lability [Unknown]
  - Dysarthria [Unknown]
  - Facial paralysis [Unknown]
  - Tongue movement disturbance [Unknown]
  - Balance disorder [Not Recovered/Not Resolved]
  - Insomnia [Unknown]
  - Fatigue [Unknown]
  - Therapy cessation [Unknown]

NARRATIVE: CASE EVENT DATE: 20201201
